FAERS Safety Report 8904049 (Version 4)
Quarter: 2012Q4

REPORT INFORMATION
  Report Type: 
  Country: GB (occurrence: KR)
  Receive Date: 20121112
  Receipt Date: 20121220
  Transmission Date: 20130627
  Serious: Yes (Death, Other)
  Sender: FDA-Public Use
  Company Number: KR-BRISTOL-MYERS SQUIBB COMPANY-17109950

PATIENT
  Age: 49 Year
  Sex: Male

DRUGS (6)
  1. STOCRIN TABS 600 MG [Suspect]
     Indication: HIV INFECTION
     Route: 048
     Dates: start: 20121031, end: 20121031
  2. TRUVADA [Suspect]
     Indication: HIV INFECTION
     Route: 048
     Dates: start: 20121031, end: 20121031
  3. TRIMETHOPRIM + SULFAMETHOXAZOLE [Concomitant]
     Indication: PNEUMOCYSTIS JIROVECI INFECTION
     Route: 042
     Dates: start: 20121023, end: 20121031
  4. METHYLPREDNISOLONE [Concomitant]
     Dates: start: 20121023, end: 20121031
  5. ACETYLCYSTEINE [Concomitant]
     Dates: start: 20121023, end: 20121031
  6. RANITIDINE [Concomitant]
     Dates: start: 20121023, end: 20121031

REACTIONS (6)
  - Respiratory arrest [Fatal]
  - Convulsion [Fatal]
  - Eye movement disorder [Fatal]
  - Nausea [Fatal]
  - Vomiting [Fatal]
  - Cardiac arrest [Fatal]
